FAERS Safety Report 9355609 (Version 1)
Quarter: 2013Q2

REPORT INFORMATION
  Report Type: Spontaneous
  Country: GB (occurrence: GB)
  Receive Date: 20130619
  Receipt Date: 20130619
  Transmission Date: 20140414
  Serious: Yes (Other)
  Sender: FDA-Public Use
  Company Number: GB-ASTELLAS-2013EU003019

PATIENT
  Sex: Female
  Weight: 79 kg

DRUGS (4)
  1. VESICARE [Suspect]
     Indication: URGE INCONTINENCE
     Dosage: UNK
     Route: 065
     Dates: start: 20121010, end: 20121227
  2. LEVOTHYROXINE [Concomitant]
     Indication: THYROID DISORDER
     Dosage: UNK MG, UNKNOWN/D
     Route: 065
     Dates: start: 2002
  3. SERETIDE [Concomitant]
     Dosage: 250 MG, UNKNOWN/D
     Route: 055
     Dates: start: 2011
  4. OMEPRAZOLE [Concomitant]
     Dosage: 20 MG, UNKNOWN/D
     Route: 065
     Dates: start: 2008

REACTIONS (8)
  - Angioedema [Unknown]
  - Leukocytoclastic vasculitis [Not Recovered/Not Resolved]
  - Constipation [Unknown]
  - Mouth ulceration [Unknown]
  - Candida infection [Unknown]
  - Urticaria [Unknown]
  - Lichen planus [Not Recovered/Not Resolved]
  - Fatigue [Not Recovered/Not Resolved]
